FAERS Safety Report 4465103-4 (Version None)
Quarter: 2004Q4

REPORT INFORMATION
  Report Type: 
  Country: None (occurrence: None)
  Receive Date: 20041004
  Receipt Date: 20040928
  Transmission Date: 20050328
  Serious: Yes (Hospitalization)
  Sender: FDA-Public Use
  Company Number: 200419599GDDC

PATIENT
  Age: 44 Year
  Sex: Female

DRUGS (1)
  1. MINIRIN [Suspect]
     Indication: DIABETES INSIPIDUS
     Route: 045

REACTIONS (3)
  - CYSTITIS [None]
  - OLIGURIA [None]
  - THIRST DECREASED [None]
